FAERS Safety Report 19750234 (Version 3)
Quarter: 2021Q4

REPORT INFORMATION
  Report Type: Report from Study
  Country: CR (occurrence: CR)
  Receive Date: 20210826
  Receipt Date: 20211023
  Transmission Date: 20220303
  Serious: Yes (Other)
  Sender: FDA-Public Use
  Company Number: NVSC2021CR191207

PATIENT
  Age: 67 Year
  Sex: Female

DRUGS (4)
  1. EXFORGE [Suspect]
     Active Substance: AMLODIPINE BESYLATE\VALSARTAN
     Indication: Product used for unknown indication
     Dosage: 1 DF (APPROXIMATELY 1 YEAR AGO)
     Route: 065
  2. EXFORGE [Suspect]
     Active Substance: AMLODIPINE BESYLATE\VALSARTAN
     Dosage: 1 DF (TWO YEARS AGO)
     Route: 065
  3. HYDROCHLOROTHIAZIDE\VALSARTAN [Suspect]
     Active Substance: HYDROCHLOROTHIAZIDE\VALSARTAN
     Indication: Product used for unknown indication
     Dosage: 1 DF (STARTED LAST YEAR)
     Route: 065
  4. HYDROCHLOROTHIAZIDE\VALSARTAN [Suspect]
     Active Substance: HYDROCHLOROTHIAZIDE\VALSARTAN
     Dosage: 1 DF (320/25 MG) QD(STARTED 2 YEARS AGO)
     Route: 065

REACTIONS (3)
  - Arrhythmia [Unknown]
  - Blood pressure abnormal [Unknown]
  - Incorrect dose administered [Unknown]
